FAERS Safety Report 8932754 (Version 1)
Quarter: 2012Q4

REPORT INFORMATION
  Report Type: 
  Country: US (occurrence: US)
  Receive Date: 20121129
  Receipt Date: 20121129
  Transmission Date: 20130627
  Serious: Yes (Other)
  Sender: FDA-Public Use
  Company Number: PHEH2012US023359

PATIENT
  Sex: Female

DRUGS (1)
  1. RECLAST [Suspect]
     Route: 042
     Dates: start: 20111227

REACTIONS (1)
  - Myocardial infarction [Unknown]
